FAERS Safety Report 13828015 (Version 1)
Quarter: 2017Q3

REPORT INFORMATION
  Report Type: Spontaneous
  Country: US (occurrence: US)
  Receive Date: 20170802
  Receipt Date: 20170802
  Transmission Date: 20171127
  Serious: No
  Sender: FDA-Public Use
  Company Number: None

PATIENT
  Age: 8 Year
  Sex: Male
  Weight: 33.6 kg

DRUGS (1)
  1. DEXMETHYLPHENIDATE ER 5MG [Suspect]
     Active Substance: DEXMETHYLPHENIDATE HYDROCHLORIDE
     Indication: ATTENTION DEFICIT/HYPERACTIVITY DISORDER
     Route: 048
     Dates: start: 201607

REACTIONS (4)
  - Product substitution issue [None]
  - Feeling abnormal [None]
  - Decreased appetite [None]
  - Flat affect [None]

NARRATIVE: CASE EVENT DATE: 201607
